FAERS Safety Report 23129856 (Version 2)
Quarter: 2023Q4

REPORT INFORMATION
  Report Type: Spontaneous
  Country: AT (occurrence: AT)
  Receive Date: 20231031
  Receipt Date: 20231120
  Transmission Date: 20240110
  Serious: No
  Sender: FDA-Public Use
  Company Number: AT-ELI_LILLY_AND_COMPANY-AT202310012226

PATIENT
  Age: 40 Year
  Sex: Male

DRUGS (3)
  1. TALTZ [Suspect]
     Active Substance: IXEKIZUMAB
     Indication: Axial spondyloarthritis
     Dosage: 80 MG, OTHER (ONCE IN EVERY FOUR WEEKS)
     Route: 065
     Dates: start: 202007
  2. TALTZ [Suspect]
     Active Substance: IXEKIZUMAB
     Dosage: 80 MG, OTHER (ONCE IN EVERY EIGHT WEEKS)
     Route: 065
     Dates: start: 2022
  3. TALTZ [Suspect]
     Active Substance: IXEKIZUMAB
     Dosage: 80 MG, OTHER (ONCE IN EVERY FOUR WEEKS)
     Route: 065

REACTIONS (4)
  - Listless [Unknown]
  - Stress [Unknown]
  - Ankylosing spondylitis [Unknown]
  - Inappropriate schedule of product administration [Recovered/Resolved]

NARRATIVE: CASE EVENT DATE: 20220101
